FAERS Safety Report 9096575 (Version 1)
Quarter: 2013Q1

REPORT INFORMATION
  Report Type: Spontaneous
  Country: US (occurrence: US)
  Receive Date: 20130211
  Receipt Date: 20130211
  Transmission Date: 20140127
  Serious: No
  Sender: FDA-Public Use
  Company Number: US-BAYER-2013-001422

PATIENT
  Age: 36 Year
  Sex: Female

DRUGS (7)
  1. AVELOX [Suspect]
     Indication: UPPER RESPIRATORY TRACT INFECTION
     Dosage: 400 MG, QD
     Route: 048
     Dates: start: 20121228, end: 20121231
  2. AVELOX [Suspect]
     Indication: PRODUCTIVE COUGH
  3. NORCO [Concomitant]
  4. ROBAXIN [Concomitant]
  5. BIRTH CONTROL PILL [Concomitant]
  6. ZOLOFT [Concomitant]
  7. MULTI VITAMIN [Concomitant]

REACTIONS (4)
  - Renal pain [Recovering/Resolving]
  - Arthralgia [Recovering/Resolving]
  - Joint swelling [Recovering/Resolving]
  - Arthropathy [Recovering/Resolving]
